FAERS Safety Report 7101074-X (Version None)
Quarter: 2010Q4

REPORT INFORMATION
  Report Type: 
  Country: None (occurrence: None)
  Receive Date: 20101113
  Receipt Date: 20100421
  Transmission Date: 20110411
  Serious: No
  Sender: FDA-Public Use
  Company Number: US-ALLERGAN-1005311US

PATIENT
  Sex: Female

DRUGS (1)
  1. BOTOXA? [Suspect]
     Indication: DYSTONIA
     Dosage: 20 UNITS, SINGLE
     Route: 030

REACTIONS (1)
  - DRUG INEFFECTIVE [None]
